FAERS Safety Report 19667403 (Version 1)
Quarter: 2021Q3

REPORT INFORMATION
  Report Type: Spontaneous
  Country: US (occurrence: US)
  Receive Date: 20210806
  Receipt Date: 20210806
  Transmission Date: 20211014
  Serious: No
  Sender: FDA-Public Use
  Company Number: US-TEVA-2021-US-1939476

PATIENT
  Sex: Female

DRUGS (2)
  1. ETHINYLESTRADIOL W/ETONOGESTREL TEVA [Suspect]
     Active Substance: ETHINYL ESTRADIOL\ETONOGESTREL
     Dosage: 0.015 MG IN 1 DAY AND 0.12 MG IN 1DAY
     Route: 065
     Dates: end: 20210629
  2. ETHINYLESTRADIOL W/ETONOGESTREL TEVA [Suspect]
     Active Substance: ETHINYL ESTRADIOL\ETONOGESTREL
     Dosage: 0.015 MG IN 1 DAY AND 0.12 MG IN 1DAY
     Route: 065
     Dates: end: 20210706

REACTIONS (1)
  - Heavy menstrual bleeding [Unknown]

NARRATIVE: CASE EVENT DATE: 202107
